FAERS Safety Report 16958242 (Version 2)
Quarter: 2019Q4

REPORT INFORMATION
  Report Type: Spontaneous
  Country: ES (occurrence: ES)
  Receive Date: 20191024
  Receipt Date: 20191126
  Transmission Date: 20200122
  Serious: Yes (Other)
  Sender: FDA-Public Use
  Company Number: ES-BAUSCH-BL-2019-057671

PATIENT
  Age: 82 Year
  Sex: Female
  Weight: 67 kg

DRUGS (12)
  1. MINITRAN [Suspect]
     Active Substance: NITROGLYCERIN
     Indication: ANGINA PECTORIS
     Dosage: 10 MG/24 HOUR
     Route: 062
     Dates: start: 2014
  2. SEGURIL [Suspect]
     Active Substance: FUROSEMIDE
     Indication: ANGINA PECTORIS
     Dosage: 0.5 DOSAGE FORM (BREAKFAST)
     Route: 065
     Dates: start: 2016
  3. ENALAPRIL PLUS HIDROCLOROTIAZIDA [Suspect]
     Active Substance: ENALAPRIL MALEATE\HYDROCHLOROTHIAZIDE
     Indication: CARDIAC FAILURE CHRONIC
     Dosage: 1 DOSAGE FORM (BREAKFAST)
     Route: 065
     Dates: start: 2017
  4. SINTROM [Suspect]
     Active Substance: ACENOCOUMAROL
     Indication: ANGINA PECTORIS
     Dosage: LUNCH
     Route: 065
     Dates: start: 2014
  5. LORMETAZEPAM [Suspect]
     Active Substance: LORMETAZEPAM
     Indication: PRODUCT USED FOR UNKNOWN INDICATION
     Dosage: 1 DOSAGE FORM (DINNER)
     Route: 065
     Dates: start: 2016
  6. SIMVASTATINA [Suspect]
     Active Substance: SIMVASTATIN
     Indication: ANGINA PECTORIS
     Dosage: 1 DOSAGE FORM (DINNER)
     Route: 065
     Dates: start: 2014
  7. DILIBAN [Suspect]
     Active Substance: ACETAMINOPHEN\TRAMADOL HYDROCHLORIDE
     Indication: PRODUCT USED FOR UNKNOWN INDICATION
     Dosage: 1 DOSAGE FORM (BREAKFAST/LUNCH/DINNER)
     Route: 065
     Dates: start: 201802
  8. BRINTELLIX [Suspect]
     Active Substance: VORTIOXETINE HYDROBROMIDE
     Indication: PRODUCT USED FOR UNKNOWN INDICATION
     Dosage: 1 DOSAGE FORM (LUNCH)
     Route: 065
     Dates: start: 201802
  9. DELTIUS [Suspect]
     Active Substance: CHOLECALCIFEROL
     Indication: PRODUCT USED FOR UNKNOWN INDICATION
     Dosage: 1 DOSAGE FORM (EVERY 15 DAYS)
     Route: 065
     Dates: start: 201802
  10. BISOPROLOL [Suspect]
     Active Substance: BISOPROLOL
     Indication: CARDIAC FAILURE CHRONIC
     Dosage: 0.5 DOSAGE FORM (BREAKFAST)
     Route: 065
     Dates: start: 2016
  11. FOSFOCINA [Suspect]
     Active Substance: FOSFOMYCIN SODIUM
     Indication: URINARY TRACT INFECTION
     Dosage: 1 DOSAGE FORM (DINNER)
     Route: 065
     Dates: start: 201802
  12. OMEPRAZOL [Suspect]
     Active Substance: OMEPRAZOLE
     Indication: PRODUCT USED FOR UNKNOWN INDICATION
     Dosage: 1 DOSAGE FORM, QD
     Route: 048
     Dates: start: 2014

REACTIONS (12)
  - Feeling abnormal [Unknown]
  - Fatigue [Unknown]
  - Product storage error [Unknown]
  - Nervousness [Unknown]
  - Bone pain [Unknown]
  - Cardiac failure chronic [Unknown]
  - Gingival bleeding [Unknown]
  - Nausea [Unknown]
  - Urinary tract infection [Unknown]
  - Vomiting [Unknown]
  - Arthralgia [Unknown]
  - Insomnia [Unknown]

NARRATIVE: CASE EVENT DATE: 2017
